FAERS Safety Report 6567657-0 (Version None)
Quarter: 2010Q1

REPORT INFORMATION
  Report Type: 
  Country: None (occurrence: None)
  Receive Date: 20100203
  Receipt Date: 20100126
  Transmission Date: 20100710
  Serious: Yes (Hospitalization)
  Sender: FDA-Public Use
  Company Number: US-BIOGENIDEC-2009BI031528

PATIENT
  Age: 41 Year
  Sex: Male
  Weight: 88 kg

DRUGS (6)
  1. TYSABRI [Suspect]
     Indication: MULTIPLE SCLEROSIS
     Route: 042
     Dates: start: 20090513, end: 20090930
  2. TYSABRI [Suspect]
     Route: 042
     Dates: start: 20100126
  3. PROVIGIL [Concomitant]
     Dates: end: 20090101
  4. VALPROIC ACID [Concomitant]
  5. GABAPENTIN [Concomitant]
  6. AMANTADINE HCL [Concomitant]

REACTIONS (6)
  - AMMONIA INCREASED [None]
  - COGNITIVE DISORDER [None]
  - DRUG INEFFECTIVE [None]
  - GAIT DISTURBANCE [None]
  - MULTIPLE SCLEROSIS [None]
  - NUCLEAR MAGNETIC RESONANCE IMAGING ABNORMAL [None]
